FAERS Safety Report 17911081 (Version 2)
Quarter: 2020Q3

REPORT INFORMATION
  Report Type: Report from Study
  Country: US (occurrence: US)
  Receive Date: 20200618
  Receipt Date: 20200811
  Transmission Date: 20201103
  Serious: Yes (Other)
  Sender: FDA-Public Use
  Company Number: US-AMGEN-USASP2020094678

PATIENT
  Age: 69 Year
  Sex: Female

DRUGS (3)
  1. REPATHA [Suspect]
     Active Substance: EVOLOCUMAB
     Dosage: 140 MILLIGRAM
     Route: 065
  2. REPATHA [Suspect]
     Active Substance: EVOLOCUMAB
     Dosage: 140 MILLIGRAM, Q2WK
     Route: 065
  3. REPATHA [Suspect]
     Active Substance: EVOLOCUMAB
     Indication: HYPERCHOLESTEROLAEMIA
     Dosage: 140 MILLIGRAM
     Route: 065
     Dates: start: 20190815, end: 2019

REACTIONS (10)
  - Injection site bruising [Unknown]
  - Amnesia [Unknown]
  - Dizziness [Unknown]
  - Injection site reaction [Unknown]
  - Back pain [Unknown]
  - Alopecia [Unknown]
  - Diarrhoea [Recovered/Resolved]
  - Influenza like illness [Unknown]
  - Spinal fusion surgery [Unknown]
  - Intervertebral disc protrusion [Unknown]

NARRATIVE: CASE EVENT DATE: 2019
